FAERS Safety Report 21512647 (Version 2)
Quarter: 2022Q4

REPORT INFORMATION
  Report Type: Spontaneous
  Country: US (occurrence: US)
  Receive Date: 20221027
  Receipt Date: 20221114
  Transmission Date: 20230112
  Serious: Yes (Life-Threatening, Hospitalization, Other)
  Sender: FDA-Public Use
  Company Number: US-PFIZER INC-202201230959

PATIENT
  Age: 65 Year
  Sex: Male

DRUGS (2)
  1. BUPRENORPHINE [Suspect]
     Active Substance: BUPRENORPHINE
     Dosage: UNK
     Dates: start: 20221003, end: 20221003
  2. KLONOPIN [Suspect]
     Active Substance: CLONAZEPAM
     Dosage: 20 TABLETS, SINGLE
     Dates: start: 20221003, end: 20221003

REACTIONS (2)
  - Intentional overdose [Recovered/Resolved]
  - Suicide attempt [Unknown]

NARRATIVE: CASE EVENT DATE: 20221003
